FAERS Safety Report 14153615 (Version 2)
Quarter: 2018Q3

REPORT INFORMATION
  Report Type: Spontaneous
  Country: US (occurrence: US)
  Receive Date: 20171102
  Receipt Date: 20180831
  Transmission Date: 20181010
  Serious: No
  Sender: FDA-Public Use
  Company Number: US-SA-2017SA170751

PATIENT
  Age: 63 Year
  Sex: Male

DRUGS (2)
  1. PRALUENT [Suspect]
     Active Substance: ALIROCUMAB
     Indication: HYPERCHOLESTEROLAEMIA
     Dosage: 150 MG,QOW
     Route: 058
     Dates: start: 20170627
  2. ALIROCUMAB PREFILLED PEN [Suspect]
     Active Substance: ALIROCUMAB
     Indication: HYPERCHOLESTEROLAEMIA
     Dosage: 150 MG, QOW
     Route: 058
     Dates: start: 20170627

REACTIONS (3)
  - Fatigue [Unknown]
  - Blood cholesterol increased [Unknown]
  - Myalgia [Unknown]

NARRATIVE: CASE EVENT DATE: 2017
